FAERS Safety Report 21095022 (Version 2)
Quarter: 2022Q3

REPORT INFORMATION
  Report Type: Spontaneous
  Country: US (occurrence: US)
  Receive Date: 20220718
  Receipt Date: 20220719
  Transmission Date: 20221027
  Serious: No
  Sender: FDA-Public Use
  Company Number: US-PFIZER INC-202200961808

PATIENT
  Age: 62 Year
  Sex: Female
  Weight: 101.15 kg

DRUGS (3)
  1. PAXLOVID [Suspect]
     Active Substance: NIRMATRELVIR\RITONAVIR
     Indication: COVID-19 treatment
     Dosage: [PF-07321332 300 MG]/[RITONAVIR 100 MG], 3X/DAY
     Dates: start: 20220713
  2. ZINC CHLORIDE [Concomitant]
     Active Substance: ZINC CHLORIDE
     Dosage: UNK
  3. MAGNESIUM [Concomitant]
     Active Substance: MAGNESIUM
     Dosage: UNK

REACTIONS (6)
  - Off label use [Unknown]
  - Paranasal sinus hypersecretion [Recovering/Resolving]
  - Dyspnoea [Recovered/Resolved]
  - Dysgeusia [Recovering/Resolving]
  - Oropharyngeal discomfort [Unknown]
  - Nasal dryness [Unknown]

NARRATIVE: CASE EVENT DATE: 20220713
